FAERS Safety Report 7857022-8 (Version None)
Quarter: 2011Q4

REPORT INFORMATION
  Report Type: 
  Country: None (occurrence: None)
  Receive Date: 20111027
  Receipt Date: 20111012
  Transmission Date: 20120403
  Serious: Yes (Hospitalization)
  Sender: FDA-Public Use
  Company Number: DE-AMGEN-DEUCT2011054037

PATIENT
  Age: 32 Year
  Sex: Female
  Weight: 80 kg

DRUGS (11)
  1. LEVOTHYROXINE SODIUM [Concomitant]
     Indication: HYPOTHYROIDISM
     Dosage: 75 UG, 1X/DAY
     Dates: start: 20040101
  2. METHOTREXATE SODIUM [Concomitant]
     Indication: RHEUMATOID ARTHRITIS
     Dosage: 20 MG, WEEKLY
     Dates: start: 20050101
  3. ETANERCEPT [Suspect]
     Indication: RHEUMATOID ARTHRITIS
     Dosage: 50 MG, QWK
     Dates: start: 20091214
  4. PREDNISOLONE [Concomitant]
     Indication: RHEUMATOID ARTHRITIS
     Dosage: 5 MG, 1X/DAY
  5. PREDNISONE [Concomitant]
     Indication: RHEUMATOID ARTHRITIS
     Dosage: 5 MG, UNK
  6. OXYCODONE HCL [Concomitant]
     Indication: RHEUMATOID ARTHRITIS
     Dosage: UNK
  7. SALBU                              /00139501/ [Concomitant]
     Indication: ASTHMA
     Dosage: UNK AS NEEDED
  8. ARAVA [Concomitant]
     Indication: RHEUMATOID ARTHRITIS
     Dosage: 20 MG, 1X/DAY
  9. TILIDINE [Concomitant]
     Indication: RHEUMATOID ARTHRITIS
     Dosage: 50 UNK, 2X/DAY
  10. ATMADISC [Concomitant]
     Indication: ASTHMA
     Dosage: 50/250 2X/DAY
     Dates: start: 20090701
  11. IBU [Concomitant]
     Indication: RHEUMATOID ARTHRITIS
     Dosage: 800 UNK, UNK

REACTIONS (1)
  - ARTHROSCOPY [None]
